FAERS Safety Report 6695355-1 (Version None)
Quarter: 2010Q2

REPORT INFORMATION
  Report Type: 
  Country: None (occurrence: None)
  Receive Date: 20100423
  Receipt Date: 20100423
  Transmission Date: 20101027
  Serious: Yes (Hospitalization)
  Sender: FDA-Public Use
  Company Number: None

PATIENT
  Age: 81 Year
  Sex: Female
  Weight: 60 kg

DRUGS (4)
  1. ACETAMINOPHEN [Suspect]
     Indication: PAIN
     Dosage: 325 MG X2 DAILY PO ; CHRONIC
     Route: 048
  2. PAROXETINE HCL [Concomitant]
  3. ENALAPRIL MALEATE AND HYDROCHLOROTHIAZIDE [Concomitant]
  4. NAMENDA [Concomitant]

REACTIONS (3)
  - DRUG TOXICITY [None]
  - HEPATIC ENZYME INCREASED [None]
  - RENAL DISORDER [None]
